FAERS Safety Report 13800466 (Version 2)
Quarter: 2017Q3

REPORT INFORMATION
  Report Type: Spontaneous
  Country: FR (occurrence: FR)
  Receive Date: 20170727
  Receipt Date: 20170808
  Transmission Date: 20171127
  Serious: Yes (Hospitalization, Other)
  Sender: FDA-Public Use
  Company Number: FR-PFIZER INC-2017324706

PATIENT
  Age: 85 Year
  Sex: Female

DRUGS (5)
  1. CORDARONE [Interacting]
     Active Substance: AMIODARONE HYDROCHLORIDE
     Dosage: UNK
     Route: 048
     Dates: start: 20170526, end: 20170529
  2. ROVAMYCINE [Interacting]
     Active Substance: SPIRAMYCIN
     Indication: LUNG DISORDER
     Dosage: 1.5 IU, 3X/DAY
     Route: 042
     Dates: start: 20170524, end: 20170529
  3. CEFOTAXIME BASE [Concomitant]
     Active Substance: CEFOTAXIME SODIUM
     Dosage: UNK
     Dates: start: 20170524, end: 20170601
  4. CORDARONE [Suspect]
     Active Substance: AMIODARONE HYDROCHLORIDE
     Dosage: UNK
     Route: 048
     Dates: end: 20170524
  5. RISORDAN [Concomitant]
     Active Substance: ISOSORBIDE DINITRATE
     Dosage: UNK
     Dates: start: 20170524

REACTIONS (4)
  - Drug interaction [Unknown]
  - Acute coronary syndrome [Unknown]
  - Electrocardiogram QT prolonged [Recovered/Resolved]
  - Hypokalaemia [Recovered/Resolved]

NARRATIVE: CASE EVENT DATE: 20170526
